FAERS Safety Report 5907532-5 (Version None)
Quarter: 2008Q4

REPORT INFORMATION
  Report Type: 
  Country: None (occurrence: None)
  Receive Date: 20081003
  Receipt Date: 20081002
  Transmission Date: 20090506
  Serious: Yes (Other)
  Sender: FDA-Public Use
  Company Number: A0680111A

PATIENT
  Age: 41 Year
  Sex: Female

DRUGS (2)
  1. ALLI [Suspect]
     Indication: WEIGHT LOSS DIET
     Route: 048
     Dates: start: 20070801, end: 20080617
  2. UNSPECIFIED MEDICATION [Suspect]

REACTIONS (37)
  - ABDOMINAL PAIN UPPER [None]
  - ABNORMAL FAECES [None]
  - BLINDNESS [None]
  - CONTUSION [None]
  - DECREASED APPETITE [None]
  - DIARRHOEA [None]
  - DISCOMFORT [None]
  - DISTURBANCE IN ATTENTION [None]
  - DRUG INEFFECTIVE [None]
  - DRY MOUTH [None]
  - EATING DISORDER [None]
  - FAECAL INCONTINENCE [None]
  - FATIGUE [None]
  - FLATULENCE [None]
  - FLUID RETENTION [None]
  - FOOD CRAVING [None]
  - FRUSTRATION [None]
  - GASTROINTESTINAL DISORDER [None]
  - HEADACHE [None]
  - HOT FLUSH [None]
  - HUNGER [None]
  - HYPERPHAGIA [None]
  - ILL-DEFINED DISORDER [None]
  - MALAISE [None]
  - MENTAL IMPAIRMENT [None]
  - MIGRAINE [None]
  - MUSCULOSKELETAL STIFFNESS [None]
  - NASOPHARYNGITIS [None]
  - OROPHARYNGEAL PAIN [None]
  - PAIN [None]
  - PREMENSTRUAL SYNDROME [None]
  - RECTAL DISCHARGE [None]
  - STEATORRHOEA [None]
  - THIRST [None]
  - WEIGHT FLUCTUATION [None]
  - WEIGHT INCREASED [None]
  - WISDOM TEETH REMOVAL [None]
